FAERS Safety Report 8516085-7 (Version None)
Quarter: 2012Q3

REPORT INFORMATION
  Report Type: 
  Country: None (occurrence: None)
  Receive Date: 20120717
  Receipt Date: 20120713
  Transmission Date: 20120928
  Serious: Yes (Hospitalization)
  Sender: FDA-Public Use
  Company Number: US-PFIZER INC-2012149691

PATIENT
  Sex: Female
  Weight: 68.934 kg

DRUGS (6)
  1. ASPIRIN [Concomitant]
     Indication: CARDIAC DISORDER
     Dosage: 81 MG, 1X/DAY
  2. LANOXIN [Concomitant]
     Indication: CARDIAC DISORDER
     Dosage: 0.25 MG ONCE DAILY
  3. LIPITOR [Suspect]
     Indication: BLOOD CHOLESTEROL INCREASED
     Dosage: 10 MG, DAILY
  4. PRADAXA [Concomitant]
     Indication: ANTICOAGULANT THERAPY
     Dosage: 150 MG, 2X/DAY
  5. TENORMIN [Concomitant]
     Indication: CARDIAC DISORDER
     Dosage: 50 MG, 2X/DAY
  6. GLUCOPHAGE [Concomitant]
     Indication: DIABETES MELLITUS
     Dosage: 1000 MG, 2X/DAY

REACTIONS (1)
  - MYOCARDIAL INFARCTION [None]
